FAERS Safety Report 25477708 (Version 1)
Quarter: 2025Q2

REPORT INFORMATION
  Report Type: Spontaneous
  Country: GB (occurrence: GB)
  Receive Date: 20250625
  Receipt Date: 20250625
  Transmission Date: 20250716
  Serious: Yes (Other)
  Sender: ORGANON
  Company Number: None

PATIENT
  Age: 75 Year
  Sex: Female
  Weight: 62 kg

DRUGS (2)
  1. ALENDRONATE SODIUM [Suspect]
     Active Substance: ALENDRONATE SODIUM
  2. JOINTACE OMEGA 3 [Concomitant]
     Indication: Routine health maintenance
     Dates: start: 20100701

REACTIONS (2)
  - Medication error [Unknown]
  - Burning mouth syndrome [Not Recovered/Not Resolved]

NARRATIVE: CASE EVENT DATE: 20250425
